FAERS Safety Report 17870554 (Version 1)
Quarter: 2020Q2

REPORT INFORMATION
  Report Type: Spontaneous
  Country: US (occurrence: US)
  Receive Date: 20200606
  Receipt Date: 20200606
  Transmission Date: 20200714
  Serious: Yes (Life-Threatening, Disabling)
  Sender: FDA-Public Use
  Company Number: None

PATIENT
  Age: 62 Year
  Sex: Male
  Weight: 83.25 kg

DRUGS (9)
  1. NP THYROID [Suspect]
     Active Substance: LEVOTHYROXINE\LIOTHYRONINE
     Indication: AUTOIMMUNE THYROIDITIS
     Route: 048
     Dates: start: 20190131, end: 20190405
  2. MULTIVITAMINS [Concomitant]
     Active Substance: VITAMINS
  3. B-1 [Concomitant]
  4. T4 [Concomitant]
     Active Substance: LEVOTHYROXINE
  5. CYTOMEL [Concomitant]
     Active Substance: LIOTHYRONINE SODIUM
  6. VITAMIN E [Concomitant]
     Active Substance: .ALPHA.-TOCOPHEROL
  7. T3 THYROID MEDICINE [Concomitant]
  8. MILK THISTLE [Concomitant]
     Active Substance: DIETARY SUPPLEMENT\HERBALS\MILK THISTLE
  9. VITAMIN D3 [Concomitant]
     Active Substance: CHOLECALCIFEROL

REACTIONS (4)
  - Abdominal pain upper [None]
  - Tremor [None]
  - Dyskinesia [None]
  - Abdominal distension [None]

NARRATIVE: CASE EVENT DATE: 20190405
